FAERS Safety Report 9787949 (Version 2)
Quarter: 2013Q4

REPORT INFORMATION
  Report Type: Spontaneous
  Country: ES (occurrence: ES)
  Receive Date: 20131230
  Receipt Date: 20131230
  Transmission Date: 20140711
  Serious: Yes (Hospitalization, Other)
  Sender: FDA-Public Use
  Company Number: ES-ASTELLAS-2013US013028

PATIENT
  Sex: Male
  Weight: 75 kg

DRUGS (2)
  1. AMBISOME [Suspect]
     Indication: CANDIDA ENDOPHTHALMITIS
     Dosage: 5 MG/KG, UID/QD
     Route: 042
     Dates: start: 20131120, end: 20131123
  2. METFORMIN [Suspect]
     Indication: PRODUCT USED FOR UNKNOWN INDICATION
     Dosage: UNK
     Route: 065

REACTIONS (4)
  - Lactic acidosis [Unknown]
  - Back pain [Recovered/Resolved]
  - Renal failure [Recovering/Resolving]
  - Hypotension [Recovered/Resolved]
